FAERS Safety Report 17414459 (Version 3)
Quarter: 2020Q1

REPORT INFORMATION
  Report Type: Spontaneous
  Country: US (occurrence: US)
  Receive Date: 20200213
  Receipt Date: 20200305
  Transmission Date: 20200409
  Serious: Yes (Other)
  Sender: FDA-Public Use
  Company Number: US-PFIZER INC-2019133319

PATIENT
  Age: 74 Year
  Sex: Female
  Weight: 65.5 kg

DRUGS (2)
  1. LYRICA [Suspect]
     Active Substance: PREGABALIN
     Dosage: 37.5 MG, UNK [STARTED TAKING HALF HER DOSE ]
  2. LYRICA [Suspect]
     Active Substance: PREGABALIN
     Indication: FIBROMYALGIA
     Dosage: 75 MG, 2X/DAY
     Route: 048
     Dates: start: 2008

REACTIONS (8)
  - Nervousness [Recovering/Resolving]
  - Agitation [Not Recovered/Not Resolved]
  - Influenza [Unknown]
  - Intentional product misuse [Unknown]
  - Tremor [Recovering/Resolving]
  - Withdrawal syndrome [Unknown]
  - Respiratory tract infection [Unknown]
  - Malaise [Unknown]

NARRATIVE: CASE EVENT DATE: 201903
